FAERS Safety Report 4623465-9 (Version None)
Quarter: 2005Q1

REPORT INFORMATION
  Report Type: 
  Country: None (occurrence: None)
  Receive Date: 20050330
  Receipt Date: 20050321
  Transmission Date: 20050727
  Serious: Yes (Hospitalization)
  Sender: FDA-Public Use
  Company Number: STA-AE-05-MTX-005

PATIENT
  Age: 77 Year
  Sex: Female

DRUGS (4)
  1. METHOTREXATE [Suspect]
     Indication: B-CELL LYMPHOMA
     Dosage: 15 MG, OD, IT
     Route: 037
     Dates: start: 20041211, end: 20041211
  2. ONCOVIN [Suspect]
     Indication: B-CELL LYMPHOMA
     Dosage: 2 MG, OD, IV
     Route: 042
     Dates: start: 20041211, end: 20041211
  3. PREDNISONE TAB [Concomitant]
  4. ACETAMINOPHEN [Concomitant]

REACTIONS (11)
  - C-REACTIVE PROTEIN INCREASED [None]
  - CARDIAC MURMUR [None]
  - DERMATITIS BULLOUS [None]
  - DYSPNOEA [None]
  - OXYGEN SATURATION DECREASED [None]
  - PANCYTOPENIA [None]
  - PLEURAL EFFUSION [None]
  - PURULENCE [None]
  - PYREXIA [None]
  - RASH [None]
  - TACHYPNOEA [None]
